FAERS Safety Report 14027358 (Version 3)
Quarter: 2018Q1

REPORT INFORMATION
  Report Type: Report from Study
  Country: DE (occurrence: DE)
  Receive Date: 20170929
  Receipt Date: 20180216
  Transmission Date: 20180508
  Serious: Yes (Hospitalization)
  Sender: FDA-Public Use
  Company Number: DE-BIOGEN-2017BI00465292

PATIENT
  Age: 26 Year
  Sex: Male
  Weight: 64 kg

DRUGS (5)
  1. TYSABRI [Suspect]
     Active Substance: NATALIZUMAB
     Dosage: INFUSED FOR 1 HOUR
     Route: 042
     Dates: start: 20130424
  2. MESALAZINE [Concomitant]
     Active Substance: MESALAMINE
     Indication: PRODUCT USED FOR UNKNOWN INDICATION
     Route: 065
  3. IBUPROFEN. [Concomitant]
     Active Substance: IBUPROFEN
     Indication: PRODUCT USED FOR UNKNOWN INDICATION
     Route: 065
  4. PARACETAMOL [Concomitant]
     Active Substance: ACETAMINOPHEN
     Indication: PRODUCT USED FOR UNKNOWN INDICATION
     Route: 065
  5. TYSABRI [Suspect]
     Active Substance: NATALIZUMAB
     Indication: MULTIPLE SCLEROSIS
     Route: 042

REACTIONS (2)
  - Crohn^s disease [Recovered/Resolved]
  - Gastric perforation [Recovered/Resolved]

NARRATIVE: CASE EVENT DATE: 20151011
